FAERS Safety Report 4402707-9 (Version None)
Quarter: 2004Q3

REPORT INFORMATION
  Report Type: 
  Country: None (occurrence: None)
  Receive Date: 20040720
  Receipt Date: 20040720
  Transmission Date: 20050211
  Serious: Yes (Other)
  Sender: FDA-Public Use
  Company Number: None

PATIENT
  Age: 65 Year
  Sex: Male
  Weight: 72.5755 kg

DRUGS (2)
  1. OXYCONTIN [Suspect]
     Indication: PAIN
     Dates: start: 20010101, end: 20030101
  2. HYDROCODONE [Suspect]
     Indication: PAIN
     Dates: start: 20010101, end: 20030101

REACTIONS (2)
  - CHILLS [None]
  - DRUG INTERACTION POTENTIATION [None]
